FAERS Safety Report 5368147-3 (Version None)
Quarter: 2007Q2

REPORT INFORMATION
  Report Type: 
  Country: None (occurrence: None)
  Receive Date: 20070620
  Receipt Date: 20070608
  Transmission Date: 20071010
  Serious: Yes (Other)
  Sender: FDA-Public Use
  Company Number: FABR-12021

PATIENT
  Age: 41 Year
  Sex: Female
  Weight: 87.2 kg

DRUGS (7)
  1. FABRAZYME [Suspect]
     Indication: FABRY'S DISEASE
     Dosage: 85 MG Q2WKS IV
     Route: 042
     Dates: start: 20060430
  2. BENADRYL [Concomitant]
  3. TYLENOL [Concomitant]
  4. POTASSIUM CHLORIDE [Concomitant]
  5. PLAQUINOL [Concomitant]
  6. UNSPECIFIED STEROIDS [Concomitant]
  7. LYRICA [Concomitant]

REACTIONS (6)
  - BURNING SENSATION [None]
  - HYPOAESTHESIA [None]
  - OEDEMA PERIPHERAL [None]
  - PAIN IN EXTREMITY [None]
  - PARAESTHESIA [None]
  - THROMBOSIS [None]
